FAERS Safety Report 6640603-7 (Version None)
Quarter: 2010Q1

REPORT INFORMATION
  Report Type: 
  Country: None (occurrence: None)
  Receive Date: 20100318
  Receipt Date: 20100312
  Transmission Date: 20100710
  Serious: Yes (Hospitalization)
  Sender: FDA-Public Use
  Company Number: JP-BRISTOL-MYERS SQUIBB COMPANY-15006570

PATIENT
  Age: 62 Year
  Sex: Male

DRUGS (3)
  1. CETUXIMAB [Suspect]
     Indication: HEAD AND NECK CANCER
     Dosage: STRENGTH:5MG/ML
     Route: 042
     Dates: start: 20100224
  2. CISPLATIN [Suspect]
     Indication: HEAD AND NECK CANCER
     Route: 042
     Dates: start: 20100202
  3. FLUOROURACIL [Suspect]
     Indication: HEAD AND NECK CANCER
     Dosage: DAY 1-4 OF CYCLE
     Route: 042
     Dates: start: 20100202

REACTIONS (1)
  - HEADACHE [None]
